FAERS Safety Report 6805205-8 (Version None)
Quarter: 2010Q2

REPORT INFORMATION
  Report Type: 
  Country: None (occurrence: None)
  Receive Date: 20100628
  Receipt Date: 20070920
  Transmission Date: 20101027
  Serious: No
  Sender: FDA-Public Use
  Company Number: US-PFIZER INC-2007080140

PATIENT
  Sex: Female

DRUGS (6)
  1. GEODON [Suspect]
     Dates: start: 20070914, end: 20070919
  2. XANAX [Concomitant]
  3. CELEXA [Concomitant]
  4. VALSARTAN [Concomitant]
  5. DARIFENACIN HYDROBROMIDE [Concomitant]
  6. COMBIVENT [Concomitant]
     Indication: CHRONIC OBSTRUCTIVE PULMONARY DISEASE

REACTIONS (1)
  - TREMOR [None]
